FAERS Safety Report 12252679 (Version 3)
Quarter: 2016Q2

REPORT INFORMATION
  Report Type: Spontaneous
  Country: US (occurrence: US)
  Receive Date: 20160411
  Receipt Date: 20160620
  Transmission Date: 20160815
  Serious: Yes (Hospitalization)
  Sender: FDA-Public Use
  Company Number: US-PFIZER INC-2016160214

PATIENT
  Age: 80 Year
  Sex: Male
  Weight: 108.86 kg

DRUGS (5)
  1. LYRICA [Suspect]
     Active Substance: PREGABALIN
     Indication: BURNING FEET SYNDROME
     Dosage: 25 MG, 2X/DAY
     Route: 048
     Dates: start: 20160310
  2. LYRICA [Suspect]
     Active Substance: PREGABALIN
     Dosage: 25 MG, 4X/DAY
  3. LYRICA [Suspect]
     Active Substance: PREGABALIN
     Dosage: 25 MG, 3X/DAY
     Route: 048
     Dates: end: 20160515
  4. LYRICA [Suspect]
     Active Substance: PREGABALIN
     Indication: NEUROPATHY PERIPHERAL
     Dosage: 25 MG, DAILY
     Route: 048
     Dates: start: 20160116
  5. OXYCODONE [Concomitant]
     Active Substance: OXYCODONE
     Indication: BACK PAIN
     Dosage: 5 MG, UNK

REACTIONS (10)
  - Drug ineffective [Not Recovered/Not Resolved]
  - Joint swelling [Not Recovered/Not Resolved]
  - Peripheral swelling [Unknown]
  - Dizziness [Unknown]
  - Intentional product use issue [Unknown]
  - Dyspnoea [Unknown]
  - Weight increased [Not Recovered/Not Resolved]
  - Pharyngeal oedema [Recovered/Resolved]
  - Vision blurred [Unknown]
  - Arthralgia [Not Recovered/Not Resolved]

NARRATIVE: CASE EVENT DATE: 201601
